FAERS Safety Report 7044847-4 (Version None)
Quarter: 2010Q4

REPORT INFORMATION
  Report Type: 
  Country: None (occurrence: None)
  Receive Date: 20101014
  Receipt Date: 20101004
  Transmission Date: 20110411
  Serious: Yes (Other)
  Sender: FDA-Public Use
  Company Number: PHHY2010BR66820

PATIENT
  Age: 68 Year
  Sex: Female

DRUGS (1)
  1. RASILEZ [Suspect]
     Dosage: UNK
     Route: 048
     Dates: start: 20100920, end: 20101001

REACTIONS (2)
  - INFLAMMATION [None]
  - PARAESTHESIA [None]
